FAERS Safety Report 7325323-8 (Version None)
Quarter: 2011Q1

REPORT INFORMATION
  Report Type: 
  Country: None (occurrence: None)
  Receive Date: 20110302
  Receipt Date: 20100621
  Transmission Date: 20110831
  Serious: Yes (Hospitalization, Other)
  Sender: FDA-Public Use
  Company Number: US-BAYER-200938597NA

PATIENT
  Sex: Female
  Weight: 68.027 kg

DRUGS (5)
  1. LEXAPRO [Concomitant]
     Dosage: 10 MG/D, UNK
     Route: 048
  2. FLEXERIL [Concomitant]
     Route: 048
  3. YASMIN [Suspect]
     Indication: CONTRACEPTION
  4. XANAX [Concomitant]
  5. YAZ [Suspect]
     Indication: CONTRACEPTION
     Dosage: UNK
     Dates: start: 20061201, end: 20080901

REACTIONS (2)
  - PULMONARY EMBOLISM [None]
  - DEEP VEIN THROMBOSIS [None]
